FAERS Safety Report 5686712-0 (Version None)
Quarter: 2008Q1

REPORT INFORMATION
  Report Type: 
  Country: None (occurrence: None)
  Receive Date: 20080328
  Receipt Date: 20070523
  Transmission Date: 20080703
  Serious: No
  Sender: FDA-Public Use
  Company Number: US-BAYER-US-2007-019123

PATIENT
  Sex: Female

DRUGS (1)
  1. MIRENA [Suspect]
     Route: 015
     Dates: start: 20070513, end: 20070513

REACTIONS (3)
  - ABDOMINAL PAIN [None]
  - HYPERVENTILATION [None]
  - SYNCOPE VASOVAGAL [None]
